FAERS Safety Report 18480810 (Version 6)
Quarter: 2022Q3

REPORT INFORMATION
  Report Type: Spontaneous
  Country: US (occurrence: US)
  Receive Date: 20201109
  Receipt Date: 20220811
  Transmission Date: 20221026
  Serious: No
  Sender: FDA-Public Use
  Company Number: US-PFIZER INC-2020437533

PATIENT
  Age: 81 Year
  Sex: Female
  Weight: 47.17 kg

DRUGS (1)
  1. XELJANZ XR [Suspect]
     Active Substance: TOFACITINIB CITRATE
     Dosage: 11 MG
     Dates: start: 202011

REACTIONS (6)
  - Hypoacusis [Unknown]
  - Memory impairment [Unknown]
  - Cough [Unknown]
  - Sneezing [Unknown]
  - Hand deformity [Unknown]
  - Hearing aid user [Unknown]
